FAERS Safety Report 17261895 (Version 4)
Quarter: 2020Q1

REPORT INFORMATION
  Report Type: Report from Study
  Country: US (occurrence: US)
  Receive Date: 20200113
  Receipt Date: 20200224
  Transmission Date: 20200409
  Serious: Yes (Hospitalization, Other)
  Sender: FDA-Public Use
  Company Number: US-VELOXIS PHARMACEUTICALS-2019VELUS-000739

PATIENT
  Age: 73 Year
  Sex: Male
  Weight: 57.8 kg

DRUGS (28)
  1. CIPRO [Concomitant]
     Active Substance: CIPROFLOXACIN HYDROCHLORIDE
     Indication: PROPHYLAXIS URINARY TRACT INFECTION
     Dosage: 500 MG ONE HOUR PRIOR TO STENT REMOVAL TO PREVENT INFECTION
     Dates: start: 20191203, end: 20191217
  2. APRESOLINE HYDROCHLORIDE [Concomitant]
     Active Substance: HYDRALAZINE HYDROCHLORIDE
     Indication: HYPERTENSION
     Dosage: 25 MG, TID
     Route: 048
     Dates: start: 20191203
  3. TRANDATE [Concomitant]
     Active Substance: LABETALOL HYDROCHLORIDE
     Indication: HYPERTENSION
     Dosage: 200 MG, BID
     Route: 048
     Dates: start: 20191203
  4. BACTRIM DS [Concomitant]
     Active Substance: SULFAMETHOXAZOLE\TRIMETHOPRIM
     Indication: PROPHYLAXIS
     Dosage: 1 DF, QD
     Route: 048
     Dates: start: 20191203
  5. RESTORIL [Concomitant]
     Active Substance: TEMAZEPAM
     Indication: SLEEP DISORDER
     Dosage: 15 MG, QD
     Route: 048
  6. VALCYTE [Concomitant]
     Active Substance: VALGANCICLOVIR HYDROCHLORIDE
     Indication: PROPHYLAXIS AGAINST TRANSPLANT REJECTION
     Dosage: 450 MG, QD
     Route: 048
     Dates: start: 20191204
  7. TYLENOL [Concomitant]
     Active Substance: ACETAMINOPHEN
     Indication: PAIN
     Dosage: 325 MG, PRN (1-2 TABS BY MOUTH EVERY 6 HOURS AS NEEDED)
     Route: 048
     Dates: start: 20191203
  8. NORMODYNE [Concomitant]
     Active Substance: LABETALOL HYDROCHLORIDE
     Indication: HYPERTENSION
     Dosage: 200 MG, BID
     Route: 048
     Dates: start: 20191203
  9. MYCOSTATIN [Concomitant]
     Active Substance: NYSTATIN
     Indication: CANDIDA INFECTION
     Dosage: 5 ML (100000 UNIT/ML), BID
     Route: 048
     Dates: start: 20191203
  10. ACETAMINOPHEN;DIPHENHYDRAMINE HYDROCHLORIDE [Concomitant]
     Active Substance: ACETAMINOPHEN\DIPHENHYDRAMINE HYDROCHLORIDE
     Indication: SLEEP DISORDER
  11. NOVOLOG [Concomitant]
     Active Substance: INSULIN ASPART
     Indication: TYPE 2 DIABETES MELLITUS
     Dosage: INJECT 4 UNITS(100 UNIT/ML) UNDER SKIN 3 TIMES DAILY AT MEALTIME
     Route: 058
     Dates: start: 20191204, end: 20191214
  12. OXYCODONE [Concomitant]
     Active Substance: OXYCODONE
     Indication: PAIN
     Dosage: 5 MG (5-10 MG BY MOUTH EVERY 6 HOURS AS NEEDED), PRN
     Route: 048
     Dates: start: 20191203, end: 201912
  13. CHOLECALCIFEROL [Concomitant]
     Active Substance: CHOLECALCIFEROL
     Indication: MINERAL SUPPLEMENTATION
     Dosage: 600-500 MG-UNIT
     Route: 048
     Dates: start: 20191203, end: 20191217
  14. ACETAMINOPHEN;DIPHENHYDRAMINE HYDROCHLORIDE [Concomitant]
     Active Substance: ACETAMINOPHEN\DIPHENHYDRAMINE HYDROCHLORIDE
     Indication: PAIN
     Dosage: (12.5-325 MG), QD
     Route: 048
  15. ENVARSUS XR [Suspect]
     Active Substance: TACROLIMUS
     Indication: IMMUNOSUPPRESSION
     Dosage: 7 MG
     Route: 048
     Dates: start: 20191204, end: 20191214
  16. BASAGLAR [Concomitant]
     Active Substance: INSULIN GLARGINE
     Indication: TYPE 2 DIABETES MELLITUS
     Dosage: INJECT 4 UNITS(100 UNIT/ML)  UNDER SKIN ONE TIME DAILY
     Route: 058
     Dates: start: 20191204, end: 20191214
  17. PROTONIX [Concomitant]
     Active Substance: PANTOPRAZOLE SODIUM
     Indication: STRESS ULCER
     Dosage: 40 MG, QD
     Route: 048
     Dates: start: 20191203
  18. ENVARSUS XR [Suspect]
     Active Substance: TACROLIMUS
     Indication: PROPHYLAXIS AGAINST TRANSPLANT REJECTION
     Dosage: 6 MG
     Route: 048
     Dates: start: 20191130
  19. INSULIN [Concomitant]
     Active Substance: INSULIN NOS
     Indication: TYPE 2 DIABETES MELLITUS
     Dosage: (31G X 5 MM MISC) 4 TIMES DAILY
     Route: 065
     Dates: start: 20191204
  20. MYCOPHENOLATE SODIUM [Concomitant]
     Active Substance: MYCOPHENOLATE SODIUM
     Indication: IMMUNOSUPPRESSION
     Dosage: 360 MG, BID AT MEALTIME
     Route: 048
     Dates: start: 20191203
  21. DELTASONE [Concomitant]
     Active Substance: PREDNISONE
     Indication: IMMUNOSUPPRESSION
     Dosage: 5 MG, QD
     Route: 048
     Dates: start: 20191203, end: 20191214
  22. MEVACOR [Concomitant]
     Active Substance: LOVASTATIN
     Indication: BLOOD CHOLESTEROL
     Dosage: 20 MG, QD AT BEDTIME
     Route: 048
  23. NIFEDIPINE. [Concomitant]
     Active Substance: NIFEDIPINE
     Indication: HYPERTENSION
     Dosage: 60 MG, BID
     Route: 048
     Dates: start: 20191203
  24. VANCOMYCIN [Concomitant]
     Active Substance: VANCOMYCIN
     Indication: CLOSTRIDIUM DIFFICILE INFECTION
     Dosage: 125 MG, QD
     Route: 048
     Dates: start: 20191203
  25. ASPIRIN [ACETYLSALICYLIC ACID] [Concomitant]
     Active Substance: ASPIRIN
     Indication: DISEASE RISK FACTOR
     Dosage: 81 MG, QD
     Route: 048
     Dates: start: 20191203
  26. DIALYVITE [Concomitant]
     Active Substance: ASCORBIC ACID\BIOTIN\CALCIUM PANTOTHENATE\COBALAMIN\FOLIC ACID\NIACINAMIDE\PYRIDOXINE HYDROCHLORIDE\RIBOFLAVIN\THIAMINE MONONITRATE
     Indication: SUPPLEMENTATION THERAPY
     Dosage: UNK
     Route: 048
  27. CALCIUM CARBONATE. [Concomitant]
     Active Substance: CALCIUM CARBONATE
     Indication: MINERAL SUPPLEMENTATION
     Dosage: UNK UNK, BID
     Route: 048
     Dates: start: 20191203, end: 20191217
  28. CARDURA [Concomitant]
     Active Substance: DOXAZOSIN MESYLATE
     Indication: PRODUCT USED FOR UNKNOWN INDICATION
     Dosage: 4 MG, QD
     Route: 048
     Dates: end: 20191214

REACTIONS (3)
  - Perinephric collection [Recovered/Resolved]
  - Renal artery stenosis [Recovered/Resolved]
  - Transplant rejection [Recovering/Resolving]

NARRATIVE: CASE EVENT DATE: 201912
